FAERS Safety Report 10367799 (Version 1)
Quarter: 2014Q3

REPORT INFORMATION
  Report Type: Spontaneous
  Country: ES (occurrence: ES)
  Receive Date: 20140807
  Receipt Date: 20140807
  Transmission Date: 20150326
  Serious: Yes (Other)
  Sender: FDA-Public Use
  Company Number: ES-CUBIST PHARMACEUTICAL, INC.-2014CBST001131

PATIENT

DRUGS (10)
  1. FOSFOMYCIN [Concomitant]
     Active Substance: FOSFOMYCIN
     Indication: NOSOCOMIAL INFECTION
     Dosage: 2G, Q6H
     Route: 042
  2. CUBICIN [Suspect]
     Active Substance: DAPTOMYCIN
     Indication: DEVICE RELATED INFECTION
  3. IMIPENEM [Suspect]
     Active Substance: IMIPENEM
     Indication: ENDOCARDITIS STAPHYLOCOCCAL
  4. CUBICIN [Suspect]
     Active Substance: DAPTOMYCIN
     Indication: ENDOCARDITIS STAPHYLOCOCCAL
  5. IMIPENEM [Suspect]
     Active Substance: IMIPENEM
     Indication: NOSOCOMIAL INFECTION
     Dosage: 1 G, Q6H
     Route: 042
  6. FOSFOMYCIN [Concomitant]
     Active Substance: FOSFOMYCIN
     Indication: ENDOCARDITIS STAPHYLOCOCCAL
  7. FOSFOMYCIN [Concomitant]
     Active Substance: FOSFOMYCIN
     Indication: DEVICE RELATED INFECTION
  8. CUBICIN [Suspect]
     Active Substance: DAPTOMYCIN
     Indication: NOSOCOMIAL INFECTION
     Dosage: 6-10 MG/KG, UNK
     Route: 065
  9. CUBICIN [Suspect]
     Active Substance: DAPTOMYCIN
     Indication: OFF LABEL USE
  10. IMIPENEM [Suspect]
     Active Substance: IMIPENEM
     Indication: DEVICE RELATED INFECTION

REACTIONS (2)
  - Leukopenia [Unknown]
  - Staphylococcal bacteraemia [Recovered/Resolved]
